FAERS Safety Report 24341771 (Version 2)
Quarter: 2024Q3

REPORT INFORMATION
  Report Type: Spontaneous
  Country: US (occurrence: US)
  Receive Date: 20240920
  Receipt Date: 20240928
  Transmission Date: 20241017
  Serious: Yes (Other)
  Sender: ABBVIE
  Company Number: US-ABBVIE-5928849

PATIENT
  Sex: Female

DRUGS (3)
  1. LUPRON [Suspect]
     Active Substance: LEUPROLIDE ACETATE
     Indication: Product used for unknown indication
     Route: 058
     Dates: start: 2023
  2. IBRANCE [Suspect]
     Active Substance: PALBOCICLIB
     Indication: Product used for unknown indication
     Route: 065
  3. ANASTROZOLE [Suspect]
     Active Substance: ANASTROZOLE
     Indication: Product used for unknown indication
     Route: 065

REACTIONS (12)
  - Lymphadenectomy [Unknown]
  - Arthralgia [Unknown]
  - Epistaxis [Recovered/Resolved]
  - Diarrhoea [Unknown]
  - Headache [Unknown]
  - Fatigue [Recovered/Resolved]
  - Asthenopia [Recovered/Resolved]
  - Decreased appetite [Recovered/Resolved]
  - Taste disorder [Recovered/Resolved]
  - Dizziness [Not Recovered/Not Resolved]
  - Procedural pain [Unknown]
  - Head discomfort [Recovered/Resolved]
